FAERS Safety Report 16302198 (Version 1)
Quarter: 2019Q2

REPORT INFORMATION
  Report Type: Spontaneous
  Country: US (occurrence: US)
  Receive Date: 20190405
  Receipt Date: 20190405
  Transmission Date: 20190711
  Serious: Yes (Hospitalization, Other)
  Sender: FDA-Public Use
  Company Number: None

PATIENT
  Age: 57 Year
  Sex: Female
  Weight: 84.7 kg

DRUGS (1)
  1. AXICABTAGENE CILOLAUCAL [Suspect]
     Active Substance: AXICABTAGENE CILOLEUCEL
     Indication: DIFFUSE LARGE B-CELL LYMPHOMA REFRACTORY
     Route: 042
     Dates: start: 20190305

REACTIONS (4)
  - Bladder discomfort [None]
  - Cytokine release syndrome [None]
  - Pollakiuria [None]
  - Dysuria [None]
